FAERS Safety Report 6585166-X (Version None)
Quarter: 2010Q1

REPORT INFORMATION
  Report Type: 
  Country: None (occurrence: None)
  Receive Date: 20100217
  Receipt Date: 20100209
  Transmission Date: 20100710
  Serious: Yes (Other)
  Sender: FDA-Public Use
  Company Number: US-ROCHE-685210

PATIENT
  Sex: Male
  Weight: 84.1 kg

DRUGS (3)
  1. PEGASYS [Suspect]
     Indication: HEPATITIS C
     Route: 058
     Dates: start: 20090201
  2. RIBAVIRIN [Suspect]
     Indication: HEPATITIS C
     Dosage: 600 MG EVERY MORNING AND 400 MG EVERY EVENING
     Route: 048
     Dates: start: 20090201
  3. FLUOXETINE [Concomitant]
     Indication: DEPRESSION

REACTIONS (1)
  - THROMBOSIS [None]
